FAERS Safety Report 15903189 (Version 1)
Quarter: 2019Q1

REPORT INFORMATION
  Report Type: Report from Study
  Country: US (occurrence: US)
  Receive Date: 20190202
  Receipt Date: 20190202
  Transmission Date: 20190417
  Serious: Yes (Hospitalization, Other)
  Sender: FDA-Public Use
  Company Number: US-GILEAD-2019-0387885

PATIENT
  Age: 70 Year
  Sex: Male

DRUGS (9)
  1. ASPIRIN (E.C.) [Concomitant]
     Active Substance: ASPIRIN
  2. AZELASTINE. [Concomitant]
     Active Substance: AZELASTINE HYDROCHLORIDE
  3. FERROUS SULFATE. [Concomitant]
     Active Substance: FERROUS SULFATE
  4. VELETRI [Concomitant]
     Active Substance: EPOPROSTENOL
  5. AMBRISENTAN [Suspect]
     Active Substance: AMBRISENTAN
     Indication: PULMONARY HYPERTENSION
     Dosage: 10 MG, QD
     Route: 065
     Dates: start: 20180809
  6. SILDENAFIL. [Concomitant]
     Active Substance: SILDENAFIL
  7. SIMVASTATIN. [Concomitant]
     Active Substance: SIMVASTATIN
  8. UPTRAVI [Concomitant]
     Active Substance: SELEXIPAG
  9. LEVOTHYROXINE. [Concomitant]
     Active Substance: LEVOTHYROXINE

REACTIONS (4)
  - Unevaluable event [Unknown]
  - Internal haemorrhage [Unknown]
  - Loss of consciousness [Unknown]
  - Seizure [Unknown]
